FAERS Safety Report 9438356 (Version 3)
Quarter: 2014Q4

REPORT INFORMATION
  Report Type: Spontaneous
  Country: US (occurrence: US)
  Receive Date: 20130802
  Receipt Date: 20141021
  Transmission Date: 20150529
  Serious: No
  Sender: FDA-Public Use
  Company Number: US-BAYER-2013-093520

PATIENT
  Age: 21 Year
  Sex: Female
  Weight: 77 kg

DRUGS (1)
  1. MIRENA [Suspect]
     Active Substance: LEVONORGESTREL
     Indication: CONTRACEPTION
     Dosage: 20 MCG/24HR, CONT
     Route: 015
     Dates: start: 20081218, end: 20130107

REACTIONS (5)
  - Injury [None]
  - Asthenia [None]
  - Dizziness [None]
  - Pain [None]
  - Cervical dysplasia [None]

NARRATIVE: CASE EVENT DATE: 2009
